FAERS Safety Report 23858347 (Version 2)
Quarter: 2024Q3

REPORT INFORMATION
  Report Type: Spontaneous
  Country: DE (occurrence: DE)
  Receive Date: 20240515
  Receipt Date: 20240701
  Transmission Date: 20241017
  Serious: Yes (Other)
  Sender: PFIZER
  Company Number: DE-PROCTER+GAMBLE-PH24003954

PATIENT
  Age: 89 Year
  Weight: 50 kg

DRUGS (15)
  1. PANTOPRAZOLE [Suspect]
     Active Substance: PANTOPRAZOLE
     Dosage: 3 DOSAGE FORM, QD
     Route: 048
  2. SIMVASTATIN [Suspect]
     Active Substance: SIMVASTATIN
     Dosage: 3 DOSAGE FORM, QD
     Route: 048
  3. LEVOTHYROXINE\LIOTHYRONINE [Suspect]
     Active Substance: LEVOTHYROXINE\LIOTHYRONINE
     Dosage: 3 DOSAGE FORM, QD
     Route: 048
  4. MOVICOL [Suspect]
     Active Substance: POLYETHYLENE GLYCOL 3350\POTASSIUM CHLORIDE\SODIUM BICARBONATE\SODIUM CHLORIDE
     Dosage: 3 DOSAGE FORM
     Route: 048
  5. CHOLECALCIFEROL [Suspect]
     Active Substance: CHOLECALCIFEROL
     Indication: Vitamin supplementation
     Dosage: 3 DOSAGE FORM, QD
     Route: 048
  6. TILIDINE HYDROCHLORIDE [Suspect]
     Active Substance: TILIDINE HYDROCHLORIDE
     Dosage: 12 DOSAGE FORM, QD
     Route: 048
  7. ZOLPIDEM [Suspect]
     Active Substance: ZOLPIDEM TARTRATE
     Dosage: 10 DOSAGE FORM
     Route: 048
     Dates: start: 20240428
  8. SODIUM BICARBONATE\SODIUM PHOSPHATE, MONOBASIC ANHYDROUS [Suspect]
     Active Substance: SODIUM BICARBONATE\SODIUM PHOSPHATE, MONOBASIC, ANHYDROUS
     Dosage: 3 DOSAGE FORM
     Route: 048
  9. VERAPAMIL HYDROCHLORIDE [Suspect]
     Active Substance: VERAPAMIL HYDROCHLORIDE
     Dosage: 3 DOSAGE FORM, QD
     Route: 048
  10. VALERIANA OFFICINALIS [Suspect]
     Active Substance: VALERIAN
     Dosage: 3 DOSAGE FORM, QD
     Route: 048
  11. METAMIZOLE SODIUM [Suspect]
     Active Substance: METAMIZOLE SODIUM
     Dosage: 3 DOSAGE FORM
     Route: 048
  12. VALSARTAN [Suspect]
     Active Substance: VALSARTAN
     Dosage: 12 DOSAGE FORM, QD
     Route: 048
  13. CYANOCOBALAMIN\FOLIC ACID\PYRIDOXINE HYDROCHLORIDE [Suspect]
     Active Substance: CYANOCOBALAMIN\FOLIC ACID\PYRIDOXINE HYDROCHLORIDE
     Dosage: 3 DOSAGE FORM, QD
     Route: 048
  14. MELPERONE [Suspect]
     Active Substance: MELPERONE
     Dosage: 1.5 DOSAGE FORM, QD
     Route: 048
     Dates: start: 20240428
  15. POLYETHYLENE GLYCOL\POTASSIUM CHLORIDE\SODIUM BICARBONATE [Suspect]
     Active Substance: POLYETHYLENE GLYCOL\POTASSIUM CHLORIDE\SODIUM BICARBONATE
     Dosage: 3 DOSAGE FORM
     Route: 048

REACTIONS (6)
  - Suicidal ideation [Unknown]
  - Intentional overdose [Unknown]
  - Intentional product misuse [Unknown]
  - Haemodynamic instability [Unknown]
  - Disorientation [Unknown]
  - Somnolence [Unknown]
